FAERS Safety Report 25967429 (Version 2)
Quarter: 2025Q4

REPORT INFORMATION
  Report Type: Spontaneous
  Country: US (occurrence: None)
  Receive Date: 20251028
  Receipt Date: 20251126
  Transmission Date: 20260118
  Serious: Yes (Other)
  Sender: Alvotech
  Company Number: US-ALVOTECHPMS-2025-ALVOTECHPMS-005424

PATIENT
  Age: 32 Year
  Sex: Female

DRUGS (2)
  1. SIMLANDI [Suspect]
     Active Substance: ADALIMUMAB-RYVK
     Indication: Colitis ulcerative
     Dosage: ON EITHER 03OCT25 OR 06OCT25 SHE TOOK HER FIRST DOSE OF 160 MG
     Route: 065
     Dates: start: 202510
  2. SIMLANDI [Suspect]
     Active Substance: ADALIMUMAB-RYVK
     Indication: Colitis ulcerative
     Route: 065
     Dates: start: 20251027

REACTIONS (8)
  - Haematochezia [Recovering/Resolving]
  - Weight decreased [Unknown]
  - Bone pain [Unknown]
  - Headache [Unknown]
  - Dry eye [Unknown]
  - Fatigue [Unknown]
  - Asthenia [Unknown]
  - Diarrhoea [Unknown]

NARRATIVE: CASE EVENT DATE: 20251003
